FAERS Safety Report 6042219-2 (Version None)
Quarter: 2009Q1

REPORT INFORMATION
  Report Type: 
  Country: None (occurrence: None)
  Receive Date: 20090116
  Receipt Date: 20080723
  Transmission Date: 20090719
  Serious: No
  Sender: FDA-Public Use
  Company Number: US-BAYER-200813180BCC

PATIENT
  Age: 62 Year
  Sex: Female
  Weight: 91 kg

DRUGS (16)
  1. ALEVE (CAPLET) [Suspect]
     Indication: ARTHRALGIA
     Dosage: TOTAL DAILY DOSE: 440 MG  UNIT DOSE: 220 MG
     Dates: start: 20080301, end: 20080718
  2. ALEVE (CAPLET) [Suspect]
     Dosage: UNIT DOSE: 220 MG
     Dates: start: 20080301
  3. ASPIRIN [Concomitant]
     Dosage: TOTAL DAILY DOSE: 81 MG  UNIT DOSE: 81 MG
     Dates: end: 20080722
  4. DIOVAN HCT [Concomitant]
  5. LIPITOR [Concomitant]
  6. FEXOFENADINE [Concomitant]
  7. COLOXYL [Concomitant]
  8. MULTI-VITAMIN [Concomitant]
  9. CITRACAL [Concomitant]
  10. LOVAZA [Concomitant]
  11. FISH OIL [Concomitant]
  12. FOLIC ACID [Concomitant]
  13. ASCORBIC ACID [Concomitant]
  14. PROTONIX [Concomitant]
  15. AMARYL [Concomitant]
  16. ENABLEX [Concomitant]

REACTIONS (2)
  - ABDOMINAL DISCOMFORT [None]
  - ARTHRALGIA [None]
